FAERS Safety Report 7632351-1 (Version None)
Quarter: 2011Q3

REPORT INFORMATION
  Report Type: 
  Country: None (occurrence: None)
  Receive Date: 20110725
  Receipt Date: 20100819
  Transmission Date: 20111222
  Serious: No
  Sender: FDA-Public Use
  Company Number: US-BRISTOL-MYERS SQUIBB COMPANY-15235096

PATIENT
  Age: 82 Year
  Sex: Male
  Weight: 61 kg

DRUGS (2)
  1. AMIODARONE HCL [Concomitant]
  2. COUMADIN [Suspect]
     Dates: start: 20100708

REACTIONS (4)
  - CHEST PAIN [None]
  - WEIGHT DECREASED [None]
  - ABDOMINAL PAIN UPPER [None]
  - DECREASED APPETITE [None]
